FAERS Safety Report 16426350 (Version 1)
Quarter: 2019Q3

REPORT INFORMATION
  Report Type: Spontaneous
  Country: US (occurrence: US)
  Receive Date: 20190612
  Receipt Date: 20190612
  Transmission Date: 20191004
  Serious: Yes (Hospitalization)
  Sender: FDA-Public Use
  Company Number: None

PATIENT
  Sex: Female

DRUGS (6)
  1. APAP/CODEINE 300-60MG [Concomitant]
  2. VENLAFAXINE ER 75 MG [Concomitant]
     Active Substance: VENLAFAXINE HYDROCHLORIDE
  3. FEXOFENADINE 180 MG [Concomitant]
     Active Substance: FEXOFENADINE HYDROCHLORIDE
  4. PREDNISONE 10 MG [Concomitant]
     Active Substance: PREDNISONE
  5. WARFARIN 6 MG [Concomitant]
  6. STELARA [Suspect]
     Active Substance: USTEKINUMAB
     Indication: CROHN^S DISEASE
     Route: 042
     Dates: start: 20190426

REACTIONS (4)
  - Abdominal pain [None]
  - Impaired quality of life [None]
  - Diarrhoea [None]
  - Weight fluctuation [None]
